FAERS Safety Report 4479081-5 (Version None)
Quarter: 2004Q4

REPORT INFORMATION
  Report Type: 
  Country: None (occurrence: None)
  Receive Date: 20041015
  Receipt Date: 20041001
  Transmission Date: 20050328
  Serious: Yes (Death, Hospitalization)
  Sender: FDA-Public Use
  Company Number: 2004236707FR

PATIENT
  Age: 85 Year
  Sex: Male

DRUGS (8)
  1. CELEBREX [Suspect]
     Indication: BONE PAIN
     Dosage: 200 MG, BID, ORAL
     Route: 048
     Dates: end: 20040201
  2. MOPRAL [Concomitant]
  3. PROPOFAN (CARBASALATE CALCIUM, DEXTROPROPOXYPHENE) [Concomitant]
  4. AMITRIPTYLINE HYDROCHLORIDE [Concomitant]
  5. TRINITRINE [Concomitant]
  6. LASILIX [Concomitant]
  7. AMIODARONE HCL [Concomitant]
  8. ALDACTONE [Concomitant]

REACTIONS (1)
  - GASTROINTESTINAL HAEMORRHAGE [None]
